FAERS Safety Report 12562215 (Version 1)
Quarter: 2016Q3

REPORT INFORMATION
  Report Type: Spontaneous
  Country: US (occurrence: US)
  Receive Date: 20160715
  Receipt Date: 20160715
  Transmission Date: 20161109
  Serious: Yes (Hospitalization, Other)
  Sender: FDA-Public Use
  Company Number: US-ACTAVIS-2016-15383

PATIENT
  Age: 24 Year
  Sex: Male

DRUGS (3)
  1. LITHIUM. [Concomitant]
     Active Substance: LITHIUM
     Indication: PRODUCT USED FOR UNKNOWN INDICATION
     Dosage: UNKNOWN
     Route: 065
  2. OXCARBAZEPINE. [Concomitant]
     Active Substance: OXCARBAZEPINE
     Indication: PRODUCT USED FOR UNKNOWN INDICATION
     Dosage: UNKNOWN
     Route: 065
  3. QUETIAPINE (AGPTC) [Suspect]
     Active Substance: QUETIAPINE
     Indication: PARANOIA
     Dosage: UNKNOWN
     Route: 065

REACTIONS (1)
  - Thrombotic thrombocytopenic purpura [Recovering/Resolving]
